FAERS Safety Report 6135279-1 (Version None)
Quarter: 2009Q1

REPORT INFORMATION
  Report Type: 
  Country: None (occurrence: None)
  Receive Date: 20090327
  Receipt Date: 20090323
  Transmission Date: 20090719
  Serious: Yes (Life-Threatening, Other)
  Sender: FDA-Public Use
  Company Number: DE-GENENTECH-278730

PATIENT
  Age: 66 Year
  Sex: Male

DRUGS (2)
  1. EFALIZUMAB [Suspect]
     Indication: ERYTHRODERMIC PSORIASIS
     Dosage: UNK
  2. ADALIMUMAB [Suspect]
     Indication: DRUG USE FOR UNKNOWN INDICATION
     Dosage: UNK

REACTIONS (2)
  - COAGULOPATHY [None]
  - HEPATITIS B [None]
